FAERS Safety Report 16831979 (Version 1)
Quarter: 2019Q3

REPORT INFORMATION
  Report Type: Spontaneous
  Country: US (occurrence: US)
  Receive Date: 20190920
  Receipt Date: 20190920
  Transmission Date: 20191005
  Serious: No
  Sender: FDA-Public Use
  Company Number: US-TEVA-2019-US-1109494

PATIENT
  Sex: Female
  Weight: 72.12 kg

DRUGS (21)
  1. CHOLECALCIFEROL [Concomitant]
     Active Substance: CHOLECALCIFEROL
     Indication: VITAMIN D DEFICIENCY
     Dosage: 100,000 UNITS VITAMIN D, ONE TABLET BY MOUTH DAILY
  2. DOCUSATE SODIUM. [Concomitant]
     Active Substance: DOCUSATE SODIUM
     Indication: CONSTIPATION
     Dosage: 100 MILLIGRAM DAILY;
  3. ZANAFLEX [Concomitant]
     Active Substance: TIZANIDINE HYDROCHLORIDE
     Indication: CEREBRAL PALSY
     Dosage: 24 MILLIGRAM DAILY; 4 MG 2 BY MOUTH THREE TIMES A DAY
  4. AMLODINE [Concomitant]
     Active Substance: AMLODIPINE BESYLATE
     Indication: BLOOD PRESSURE MEASUREMENT
     Dosage: 10 MILLIGRAM DAILY;
  5. ASPIRIN. [Concomitant]
     Active Substance: ASPIRIN
     Indication: ANTICOAGULANT THERAPY
     Dosage: 162 MILLIGRAM DAILY; 2 PILLS IN MORNING
  6. ONDANSETRON [Suspect]
     Active Substance: ONDANSETRON
     Indication: NAUSEA
     Dosage: 12 MILLIGRAM DAILY;
     Route: 048
  7. TRAZODONE [Concomitant]
     Active Substance: TRAZODONE HYDROCHLORIDE
     Indication: SLEEP DISORDER
     Dosage: 50 MILLIGRAM DAILY;
  8. DILANTIN [Concomitant]
     Active Substance: PHENYTOIN
     Indication: SEIZURE
     Dosage: 600 MILLIGRAM DAILY; 600 MG A DAY, 3 IN MORNING AND 3 IN THE EVENING
  9. ATENOLOL. [Concomitant]
     Active Substance: ATENOLOL
     Indication: BLOOD PRESSURE MEASUREMENT
     Dosage: 100 MILLIGRAM DAILY;
  10. DICLOFENAC [Concomitant]
     Active Substance: DICLOFENAC
     Indication: ARTHRALGIA
     Dosage: 4 G TOPICALLY 4 TIMES A DAY AS NEEDED
  11. FERROUS SULFATE. [Concomitant]
     Active Substance: FERROUS SULFATE
     Indication: ANAEMIA
     Dosage: 325 MILLIGRAM DAILY;
  12. FLUTICASONE. [Concomitant]
     Active Substance: FLUTICASONE
     Indication: CHRONIC OBSTRUCTIVE PULMONARY DISEASE
     Dosage: 2 SPRAYS ONE NOSTRIL FOR 14 DAYS FOR FLARE UPS AS NEEDED, DOSE UNKNOWN TO REPORTER
  13. FLUTICASONE. [Concomitant]
     Active Substance: FLUTICASONE
     Indication: ASTHMA
  14. ATORVASTATIN [Concomitant]
     Active Substance: ATORVASTATIN
     Indication: BLOOD CHOLESTEROL
     Dosage: 80 MILLIGRAM DAILY;
  15. EX-LAX REGULAR STRENGTH STIMULANT LAXATIVE [Concomitant]
     Active Substance: SENNOSIDES
     Indication: CONSTIPATION
     Dosage: 15 MG BY MOUTH 2 AT BEDTIME
  16. LISINOPRIL-HYDROCHLOROTHIAZIDE [Concomitant]
     Active Substance: HYDROCHLOROTHIAZIDE\LISINOPRIL
     Indication: HYPERTENSION
     Dosage: 20-25 MG PER TABLET, ONE TABLET BY MOUTH TWICE A DAY
  17. OMEPRAZOLE. [Concomitant]
     Active Substance: OMEPRAZOLE
     Indication: GASTRIC ULCER
     Dosage: 20 MG CAPSULES, 1 PILL TWICE A DAY
  18. CLONIDINE HYDROCHLORIDE. [Concomitant]
     Active Substance: CLONIDINE HYDROCHLORIDE
     Indication: BLOOD PRESSURE MEASUREMENT
     Dosage: 1.2 MILLIGRAM DAILY; 0.2 MG 2 TABLETS BY MOUTH EVERY MORNING, EVERY MID DAY, AND EVERY EVENING
  19. HYDROCORTISONE. [Concomitant]
     Active Substance: HYDROCORTISONE
     Indication: HAEMORRHOIDS
     Dosage: 2.5 PERCENT RECTAL CREAM
  20. LIDOCAINE. [Concomitant]
     Active Substance: LIDOCAINE
     Indication: PROCTALGIA
     Dosage: 5 % GEL, APPLY ONE 1G DAY TOPICALLY 2 TIMES DAILY
  21. PROMETHAZINE [Concomitant]
     Active Substance: PROMETHAZINE HYDROCHLORIDE
     Indication: NAUSEA
     Dosage: 12.5 MG BY MOUTH ONE TABLET EVERY 4 HOURS AS NEEDED

REACTIONS (1)
  - Drug ineffective [Unknown]
